FAERS Safety Report 15007869 (Version 2)
Quarter: 2018Q3

REPORT INFORMATION
  Report Type: Spontaneous
  Country: IT (occurrence: IT)
  Receive Date: 20180613
  Receipt Date: 20180806
  Transmission Date: 20181010
  Serious: Yes (Hospitalization)
  Sender: FDA-Public Use
  Company Number: PHHY2018IT017752

PATIENT
  Age: 58 Year
  Sex: Male

DRUGS (7)
  1. INFLUENZA VIRUS VACCINE [Interacting]
     Active Substance: INFLUENZA VIRUS VACCINE
     Route: 065
  2. GLIBENCLAMIDE [Interacting]
     Active Substance: GLYBURIDE
     Indication: PRODUCT USED FOR UNKNOWN INDICATION
     Route: 065
  3. ACETYLSALICYLIC ACID [Suspect]
     Active Substance: ASPIRIN
     Indication: PRODUCT USED FOR UNKNOWN INDICATION
     Route: 065
  4. SIMVASTATIN. [Interacting]
     Active Substance: SIMVASTATIN
     Indication: PRODUCT USED FOR UNKNOWN INDICATION
     Route: 065
  5. INFLUENZA VIRUS VACCINE [Interacting]
     Active Substance: INFLUENZA VIRUS VACCINE
     Indication: PRODUCT USED FOR UNKNOWN INDICATION
  6. INFLUENZA VIRUS VACCINE [Interacting]
     Active Substance: INFLUENZA VIRUS VACCINE
     Indication: IMMUNISATION
  7. SPIRONOLACTONE. [Interacting]
     Active Substance: SPIRONOLACTONE
     Indication: PRODUCT USED FOR UNKNOWN INDICATION
     Route: 065

REACTIONS (17)
  - Drug interaction [Unknown]
  - Areflexia [Unknown]
  - Hepatic pain [Unknown]
  - Myalgia [Unknown]
  - Pulmonary congestion [Unknown]
  - Rhabdomyolysis [Unknown]
  - Dehydration [Unknown]
  - Dysuria [Unknown]
  - Hepatomegaly [Unknown]
  - Gait disturbance [Unknown]
  - Oedema [Unknown]
  - Back pain [Unknown]
  - Oliguria [Unknown]
  - Quadriparesis [Unknown]
  - Scrotal oedema [Unknown]
  - Pain in extremity [Unknown]
  - Acute kidney injury [Unknown]
